FAERS Safety Report 6386832-1 (Version None)
Quarter: 2009Q4

REPORT INFORMATION
  Report Type: 
  Country: None (occurrence: None)
  Receive Date: 20091002
  Receipt Date: 20090929
  Transmission Date: 20100525
  Serious: Yes (Other)
  Sender: FDA-Public Use
  Company Number: CHPA2009US19498

PATIENT
  Age: 63 Year
  Sex: Female
  Weight: 52.154 kg

DRUGS (4)
  1. PRIVATE LABEL (NCH) [Suspect]
     Indication: SMOKING CESSATION THERAPY
     Dosage: 21 MG, QD
     Route: 062
     Dates: start: 20090928, end: 20090930
  2. PRIVATE LABEL (NCH) [Suspect]
     Dosage: 21 MG, QD
     Route: 062
     Dates: start: 20090801, end: 20090829
  3. LEVAQUIN [Concomitant]
     Indication: BRONCHITIS
     Dosage: UNK
     Route: 048
     Dates: start: 20090926, end: 20090929
  4. ALBUTEROL [Concomitant]
     Indication: CHRONIC OBSTRUCTIVE PULMONARY DISEASE
     Dosage: UNK

REACTIONS (3)
  - APPLICATION SITE PAIN [None]
  - APPLICATION SITE SWELLING [None]
  - COLONIC POLYP [None]
